FAERS Safety Report 17141830 (Version 1)
Quarter: 2019Q4

REPORT INFORMATION
  Report Type: Spontaneous
  Country: US (occurrence: US)
  Receive Date: 20191211
  Receipt Date: 20191211
  Transmission Date: 20200122
  Serious: No
  Sender: FDA-Public Use
  Company Number: US-EMD SERONO-9130797

PATIENT
  Age: 68 Year
  Sex: Female

DRUGS (1)
  1. MAVENCLAD [Suspect]
     Active Substance: CLADRIBINE
     Indication: MULTIPLE SCLEROSIS
     Route: 048

REACTIONS (8)
  - Muscle spasticity [Unknown]
  - Nausea [Unknown]
  - Motor dysfunction [Unknown]
  - Cognitive disorder [Unknown]
  - Headache [Unknown]
  - Rash [Unknown]
  - Gait disturbance [Unknown]
  - Blood glucose decreased [Unknown]
